FAERS Safety Report 12706033 (Version 3)
Quarter: 2017Q1

REPORT INFORMATION
  Report Type: Spontaneous
  Country: US (occurrence: US)
  Receive Date: 20160901
  Receipt Date: 20170306
  Transmission Date: 20170428
  Serious: No
  Sender: FDA-Public Use
  Company Number: US-JAZZ-2016-US-007724

PATIENT
  Age: 11 Year
  Sex: Male
  Weight: 53.61 kg

DRUGS (10)
  1. CLARITIN [Concomitant]
     Active Substance: LORATADINE
     Indication: HYPERSENSITIVITY
  2. VITAMIN D3 [Concomitant]
     Active Substance: CHOLECALCIFEROL
  3. PROVIGIL [Concomitant]
     Active Substance: MODAFINIL
  4. XYREM [Suspect]
     Active Substance: SODIUM OXYBATE
     Indication: NARCOLEPSY
     Dosage: 2.25 G, BID
     Route: 048
     Dates: start: 20160421
  5. SINGULAIR [Concomitant]
     Active Substance: MONTELUKAST SODIUM
  6. SUPER B COMPLEX WITH C [Concomitant]
  7. XYREM [Suspect]
     Active Substance: SODIUM OXYBATE
     Indication: CATAPLEXY
     Dosage: 3 G, BID
     Route: 048
  8. EPIPEN [Concomitant]
     Active Substance: EPINEPHRINE
  9. ADVIL [Concomitant]
     Active Substance: IBUPROFEN
     Indication: HEADACHE
  10. SALINE                             /00075401/ [Concomitant]
     Active Substance: SODIUM CHLORIDE

REACTIONS (1)
  - Abdominal pain upper [Unknown]

NARRATIVE: CASE EVENT DATE: 20160421
